FAERS Safety Report 9025430 (Version 1)
Quarter: 2013Q1

REPORT INFORMATION
  Report Type: Spontaneous
  Country: CH (occurrence: CH)
  Receive Date: 20130122
  Receipt Date: 20130122
  Transmission Date: 20140127
  Serious: Yes (Hospitalization)
  Sender: FDA-Public Use
  Company Number: CH-009507513-1301CHE008624

PATIENT
  Age: 45 Year
  Sex: Male

DRUGS (3)
  1. REMERON [Suspect]
     Dosage: 120 MG, ONCE
     Route: 048
     Dates: start: 20121101, end: 20121101
  2. METHADONE HYDROCHLORIDE [Suspect]
     Dosage: 300MG, TOTAL DAILY DOSE
     Route: 048
     Dates: start: 20121101, end: 20121101
  3. ZOLPIDEM TARTRATE [Suspect]
     Dosage: 40 MG, ONCE
     Route: 048
     Dates: start: 20121101, end: 20121101

REACTIONS (6)
  - Miosis [Recovered/Resolved]
  - Confusional state [Recovered/Resolved]
  - Somnolence [Recovered/Resolved]
  - Electrocardiogram QT prolonged [Recovered/Resolved]
  - Drug abuse [Recovered/Resolved]
  - Intentional overdose [Recovered/Resolved]
